FAERS Safety Report 19376492 (Version 1)
Quarter: 2021Q2

REPORT INFORMATION
  Report Type: Spontaneous
  Country: US (occurrence: US)
  Receive Date: 20210604
  Receipt Date: 20210604
  Transmission Date: 20210717
  Serious: No
  Sender: FDA-Public Use
  Company Number: US-ALXN-A202106346

PATIENT
  Age: 60 Year
  Sex: Female

DRUGS (1)
  1. STRENSIQ [Suspect]
     Active Substance: ASFOTASE ALFA
     Indication: HYPOPHOSPHATASIA
     Dosage: 1 MG/KG , TIW
     Route: 058
     Dates: start: 2021

REACTIONS (4)
  - Fatigue [Unknown]
  - Headache [Unknown]
  - Off label use [Unknown]
  - Injection site erythema [Unknown]

NARRATIVE: CASE EVENT DATE: 2021
